FAERS Safety Report 9657353 (Version 1)
Quarter: 2013Q4

REPORT INFORMATION
  Report Type: Spontaneous
  Country: FR (occurrence: FR)
  Receive Date: 20131030
  Receipt Date: 20131030
  Transmission Date: 20140711
  Serious: Yes (Death, Hospitalization)
  Sender: FDA-Public Use
  Company Number: FR-GLAXOSMITHKLINE-B0934819A

PATIENT
  Age: 81 Year
  Sex: Female

DRUGS (11)
  1. ARIXTRA [Suspect]
     Indication: PRODUCT USED FOR UNKNOWN INDICATION
     Dosage: 2.5MG PER DAY
     Route: 058
     Dates: end: 20130914
  2. MABTHERA [Suspect]
     Indication: NON-HODGKIN^S LYMPHOMA
     Dosage: 630MG CYCLIC
     Route: 042
     Dates: start: 20130909, end: 20130909
  3. ENDOXAN [Suspect]
     Indication: NON-HODGKIN^S LYMPHOMA
     Dosage: 1260MG CYCLIC
     Route: 042
     Dates: start: 20130909, end: 20130909
  4. DOXORUBICINE [Suspect]
     Indication: NON-HODGKIN^S LYMPHOMA
     Dosage: 42MG CYCLIC
     Route: 042
     Dates: start: 20130909, end: 20130909
  5. VINCRISTINE [Suspect]
     Indication: NON-HODGKIN^S LYMPHOMA
     Dosage: 2MG CYCLIC
     Route: 042
     Dates: start: 20130909, end: 20130909
  6. PREDNISONE [Concomitant]
     Route: 065
     Dates: start: 20130909, end: 20130909
  7. CORDARONE [Concomitant]
  8. LEVOTHYROX [Concomitant]
  9. HUMALOG [Concomitant]
  10. LANTUS [Concomitant]
  11. INNOHEP [Concomitant]
     Indication: ATRIAL FIBRILLATION

REACTIONS (5)
  - Thrombocytopenia [Fatal]
  - Shock haemorrhagic [Fatal]
  - Melaena [Unknown]
  - Livedo reticularis [Unknown]
  - Abdominal pain [Unknown]
